FAERS Safety Report 9746690 (Version 1)
Quarter: 2013Q4

REPORT INFORMATION
  Report Type: Spontaneous
  Country: GB (occurrence: GB)
  Receive Date: 20131211
  Receipt Date: 20131211
  Transmission Date: 20140711
  Serious: Yes (Other)
  Sender: FDA-Public Use
  Company Number: GB-PFIZER INC-2013353284

PATIENT
  Age: 24 Year
  Sex: Female

DRUGS (2)
  1. PREGABALIN [Suspect]
     Dosage: UNK
     Route: 048
  2. SUBOXONE [Concomitant]

REACTIONS (2)
  - Drug dependence [Not Recovered/Not Resolved]
  - Drug abuse [Not Recovered/Not Resolved]
